FAERS Safety Report 14157545 (Version 2)
Quarter: 2017Q4

REPORT INFORMATION
  Report Type: Report from Study
  Country: BR (occurrence: BR)
  Receive Date: 20171103
  Receipt Date: 20171117
  Transmission Date: 20180321
  Serious: Yes (Hospitalization)
  Sender: FDA-Public Use
  Company Number: BR-TAKEDA-2017TUS022779

PATIENT
  Age: 29 Year
  Sex: Female
  Weight: 75 kg

DRUGS (2)
  1. VEDOLIZUMAB [Suspect]
     Active Substance: VEDOLIZUMAB
     Indication: CROHN^S DISEASE
     Dosage: 300 MG, UNK
     Route: 042
     Dates: start: 20171009
  2. PREDNISONE. [Concomitant]
     Active Substance: PREDNISONE
     Dosage: UNK
     Route: 048

REACTIONS (12)
  - Crohn^s disease [Recovered/Resolved]
  - Weight decreased [Unknown]
  - Tongue discolouration [Unknown]
  - Off label use [Unknown]
  - Drug dose omission [Unknown]
  - Condition aggravated [Not Recovered/Not Resolved]
  - Cough [Not Recovered/Not Resolved]
  - Rash [Not Recovered/Not Resolved]
  - Pharyngitis [Recovered/Resolved]
  - Oral candidiasis [Unknown]
  - Furuncle [Not Recovered/Not Resolved]
  - Arthralgia [Unknown]

NARRATIVE: CASE EVENT DATE: 20171009
